FAERS Safety Report 11587420 (Version 1)
Quarter: 2015Q4

REPORT INFORMATION
  Report Type: Report from Study
  Country: GB (occurrence: GB)
  Receive Date: 20151001
  Receipt Date: 20151001
  Transmission Date: 20160304
  Serious: Yes (Other)
  Sender: FDA-Public Use
  Company Number: GB-SEATTLE GENETICS-2015SGN01562

PATIENT

DRUGS (1)
  1. BRENTUXIMAB VEDOTIN [Suspect]
     Active Substance: BRENTUXIMAB VEDOTIN
     Indication: HODGKIN^S DISEASE
     Dosage: 1.8 MG/KG, 3/WEEK
     Route: 065
     Dates: start: 20130822, end: 20131128

REACTIONS (4)
  - Leukopenia [Unknown]
  - Off label use [Unknown]
  - Thrombocytopenia [Unknown]
  - Drug dose omission [Unknown]
